FAERS Safety Report 21171780 (Version 2)
Quarter: 2022Q3

REPORT INFORMATION
  Report Type: Spontaneous
  Country: BE (occurrence: BE)
  Receive Date: 20220804
  Receipt Date: 20220906
  Transmission Date: 20221027
  Serious: Yes (Hospitalization, Disabling, Other)
  Sender: FDA-Public Use
  Company Number: BE-Accord-269663

PATIENT
  Age: 70 Year
  Sex: Female
  Weight: 89 kg

DRUGS (1)
  1. PACLITAXEL [Suspect]
     Active Substance: PACLITAXEL
     Dates: start: 202201, end: 202201

REACTIONS (1)
  - Acute pulmonary oedema [Recovered/Resolved]
